FAERS Safety Report 10440848 (Version 1)
Quarter: 2014Q3

REPORT INFORMATION
  Report Type: Spontaneous
  Country: US (occurrence: None)
  Receive Date: 20140905
  Receipt Date: 20140905
  Transmission Date: 20150326
  Serious: Yes (Other)
  Sender: FDA-Public Use
  Company Number: 3024766

PATIENT
  Age: 68 Year
  Sex: Female

DRUGS (2)
  1. SYSTANE EYEDROPS [Concomitant]
     Active Substance: POLYETHYLENE GLYCOL 400\PROPYLENE GLYCOL
  2. BLINK TEARS [Suspect]
     Active Substance: POLYETHYLENE GLYCOL 400
     Indication: DRY EYE
     Dosage: ONE DROP AS NEEDED PRN
     Route: 047
     Dates: start: 20140615, end: 20140819

REACTIONS (4)
  - Eye discharge [None]
  - Eye infection [None]
  - Product odour abnormal [None]
  - Inadequate aseptic technique in use of product [None]

NARRATIVE: CASE EVENT DATE: 20140715
